FAERS Safety Report 5809379-7 (Version None)
Quarter: 2008Q3

REPORT INFORMATION
  Report Type: 
  Country: None (occurrence: None)
  Receive Date: 20080714
  Receipt Date: 20080709
  Transmission Date: 20090109
  Serious: Yes (Death, Hospitalization, Other)
  Sender: FDA-Public Use
  Company Number: PHHY2008LB11872

PATIENT
  Age: 65 Year
  Sex: Female

DRUGS (3)
  1. ZOMETA [Suspect]
     Indication: METASTASES TO BONE
     Dosage: 4 MG, QMO
     Route: 042
  2. ZOMETA [Suspect]
     Indication: METASTATIC BRONCHIAL CARCINOMA
  3. EUTHYROX [Concomitant]

REACTIONS (8)
  - CHEST PAIN [None]
  - COMA [None]
  - DEATH [None]
  - DYSPNOEA [None]
  - FATIGUE [None]
  - HYPOXIA [None]
  - NAUSEA [None]
  - VOMITING [None]
